FAERS Safety Report 8171305-6 (Version None)
Quarter: 2012Q1

REPORT INFORMATION
  Report Type: 
  Country: None (occurrence: None)
  Receive Date: 20120228
  Receipt Date: 20120224
  Transmission Date: 20120608
  Serious: Yes (Hospitalization, Other)
  Sender: FDA-Public Use
  Company Number: US-MERCK-1106USA01394

PATIENT
  Age: 83 Year
  Sex: Female

DRUGS (9)
  1. TRAMADOL HCL [Concomitant]
     Route: 065
  2. CALCIUM (UNSPECIFIED) [Concomitant]
     Route: 065
  3. PRILOSEC [Concomitant]
     Route: 048
  4. ZYPREXA [Concomitant]
     Route: 065
  5. DOCUSATE SODIUM [Concomitant]
     Route: 065
  6. FOSAMAX [Suspect]
     Route: 048
     Dates: start: 20010124, end: 20050914
  7. FOSAMAX [Suspect]
     Route: 048
     Dates: start: 20060101
  8. DITROPAN [Concomitant]
     Route: 065
  9. PHENERGAN HCL [Concomitant]
     Route: 065

REACTIONS (24)
  - UTERINE DISORDER [None]
  - ANXIETY [None]
  - BREAST MASS [None]
  - OSTEOPENIA [None]
  - IMPAIRED HEALING [None]
  - HYPERCHOLESTEROLAEMIA [None]
  - BACTERIAL TEST POSITIVE [None]
  - OSTEOARTHRITIS [None]
  - SPINAL OSTEOARTHRITIS [None]
  - FALL [None]
  - CEREBRAL SMALL VESSEL ISCHAEMIC DISEASE [None]
  - INTERVERTEBRAL DISC DEGENERATION [None]
  - POST PROCEDURAL HAEMORRHAGE [None]
  - KYPHOSIS [None]
  - HYPERTENSION [None]
  - CARDIAC MURMUR [None]
  - CEREBRAL ATROPHY [None]
  - HAEMORRHAGIC ANAEMIA [None]
  - EXCORIATION [None]
  - BLOOD URINE PRESENT [None]
  - FEMUR FRACTURE [None]
  - CEREBRAL INFARCTION [None]
  - DEPRESSION [None]
  - DISLOCATION OF VERTEBRA [None]
